FAERS Safety Report 6640419-1 (Version None)
Quarter: 2010Q1

REPORT INFORMATION
  Report Type: 
  Country: None (occurrence: None)
  Receive Date: 20100302
  Receipt Date: 20091030
  Transmission Date: 20100710
  Serious: No
  Sender: FDA-Public Use
  Company Number: 2009272300

PATIENT
  Age: 82 Year
  Sex: Female
  Weight: 52.2 kg

DRUGS (1)
  1. TOVIAZ [Suspect]
     Indication: HYPERTONIC BLADDER
     Dosage: 8 MG
     Dates: start: 20090915, end: 20090915

REACTIONS (2)
  - DRY MOUTH [None]
  - DYSURIA [None]
